FAERS Safety Report 18200504 (Version 1)
Quarter: 2020Q3

REPORT INFORMATION
  Report Type: Spontaneous
  Country: CA (occurrence: CA)
  Receive Date: 20200826
  Receipt Date: 20200826
  Transmission Date: 20201103
  Serious: Yes (Hospitalization)
  Sender: FDA-Public Use
  Company Number: CA-PURDUE-USA-2020-0163420

PATIENT
  Age: 28 Year
  Sex: Female
  Weight: 83 kg

DRUGS (7)
  1. HUMIRA [Suspect]
     Active Substance: ADALIMUMAB
     Indication: CROHN^S DISEASE
     Dosage: 40 MG, UNK
     Route: 058
  2. ENTOCORT [Suspect]
     Active Substance: BUDESONIDE
     Dosage: 9 MG, UNK
     Route: 048
  3. ENTOCORT [Suspect]
     Active Substance: BUDESONIDE
     Dosage: 9 MG, UNK
     Route: 048
  4. PREDNISONE. [Suspect]
     Active Substance: PREDNISONE
     Indication: PRODUCT USED FOR UNKNOWN INDICATION
     Dosage: UNK
     Route: 048
  5. AZATHIOPRINE. [Concomitant]
     Active Substance: AZATHIOPRINE
     Dosage: UNK
     Route: 065
  6. ENTOCORT [Suspect]
     Active Substance: BUDESONIDE
     Indication: PRODUCT USED FOR UNKNOWN INDICATION
     Dosage: 3 MG, UNK
     Route: 048
  7. HYDROMORPHONE HCL (SIMILAR TO 19?892) [Suspect]
     Active Substance: HYDROMORPHONE HYDROCHLORIDE
     Indication: ABDOMINAL PAIN
     Dosage: 1 MG, PRN (AS REQUIRED)
     Route: 048

REACTIONS (13)
  - Crohn^s disease [Unknown]
  - Diarrhoea [Unknown]
  - Small intestinal stenosis [Unknown]
  - Small intestinal obstruction [Unknown]
  - Large intestinal stenosis [Unknown]
  - Gastrointestinal inflammation [Unknown]
  - Abdominal pain [Unknown]
  - Abdominal tenderness [Unknown]
  - Vomiting [Unknown]
  - Ileal stenosis [Unknown]
  - Appendicectomy [Unknown]
  - Abdominal distension [Unknown]
  - Headache [Unknown]
